FAERS Safety Report 19609477 (Version 1)
Quarter: 2021Q3

REPORT INFORMATION
  Report Type: Spontaneous
  Country: US (occurrence: US)
  Receive Date: 20210723
  Receipt Date: 20210723
  Transmission Date: 20211014
  Serious: No
  Sender: FDA-Public Use
  Company Number: None

PATIENT
  Age: 88 Year
  Sex: Male
  Weight: 107 kg

DRUGS (1)
  1. POMALIDOMIDE (POMALIDOMIDE 4MG CAP, ORAL) [Suspect]
     Active Substance: POMALIDOMIDE
     Indication: PLASMA CELL MYELOMA
     Route: 048
     Dates: start: 20210309, end: 20210629

REACTIONS (4)
  - Lung opacity [None]
  - Thrombosis [None]
  - Hypoxia [None]
  - Pneumonitis [None]

NARRATIVE: CASE EVENT DATE: 20210701
